FAERS Safety Report 6942233-6 (Version None)
Quarter: 2010Q3

REPORT INFORMATION
  Report Type: 
  Country: None (occurrence: None)
  Receive Date: 20100826
  Receipt Date: 20100819
  Transmission Date: 20110219
  Serious: Yes (Death)
  Sender: FDA-Public Use
  Company Number: FR-BAYER-201036925GPV

PATIENT
  Age: 62 Year
  Sex: Female

DRUGS (1)
  1. CAMPATH [Suspect]
     Indication: CHRONIC LYMPHOCYTIC LEUKAEMIA RECURRENT
     Dosage: MONOTHERAPY
     Route: 058
     Dates: start: 20100601, end: 20100701

REACTIONS (3)
  - CHOLECYSTITIS [None]
  - RENAL FAILURE [None]
  - SEPTIC SHOCK [None]
